FAERS Safety Report 4844796-3 (Version None)
Quarter: 2005Q4

REPORT INFORMATION
  Report Type: 
  Country: None (occurrence: None)
  Receive Date: 20051205
  Receipt Date: 20051123
  Transmission Date: 20060501
  Serious: Yes (Other)
  Sender: FDA-Public Use
  Company Number: FR-BRISTOL-MYERS SQUIBB COMPANY-13196514

PATIENT
  Age: 54 Year
  Sex: Female
  Weight: 67 kg

DRUGS (4)
  1. REYATAZ [Suspect]
     Indication: HIV INFECTION
     Route: 048
     Dates: start: 20040616
  2. NORVIR [Suspect]
     Dates: start: 20040616
  3. EPIVIR [Concomitant]
     Dates: start: 20040616
  4. VIREAD [Concomitant]
     Dates: start: 20040616

REACTIONS (1)
  - CERVICAL ROOT PAIN [None]
